FAERS Safety Report 7560585-3 (Version None)
Quarter: 2011Q2

REPORT INFORMATION
  Report Type: 
  Country: None (occurrence: None)
  Receive Date: 20110621
  Receipt Date: 20110131
  Transmission Date: 20111010
  Serious: No
  Sender: FDA-Public Use
  Company Number: US-ASTRAZENECA-2011SE05288

PATIENT
  Age: 70 Year
  Sex: Male

DRUGS (4)
  1. REMICADE [Concomitant]
  2. MERCAPTOPURINE [Concomitant]
  3. ENTOCORT EC [Suspect]
     Indication: CROHN'S DISEASE
     Route: 048
     Dates: start: 20110128
  4. ENTOCORT EC [Suspect]
     Route: 048

REACTIONS (2)
  - FATIGUE [None]
  - LISTLESS [None]
